FAERS Safety Report 5475842-4 (Version None)
Quarter: 2007Q4

REPORT INFORMATION
  Report Type: 
  Country: None (occurrence: None)
  Receive Date: 20071003
  Receipt Date: 20070927
  Transmission Date: 20080405
  Serious: Yes (Hospitalization)
  Sender: FDA-Public Use
  Company Number: B0489576A

PATIENT
  Age: 47 Year
  Sex: Female

DRUGS (3)
  1. ZINACEF [Suspect]
     Indication: PNEUMONIA
     Route: 065
     Dates: start: 20070811, end: 20070811
  2. ZOMIG [Concomitant]
  3. PLAVIX [Concomitant]

REACTIONS (2)
  - PRURITUS [None]
  - RASH [None]
